FAERS Safety Report 10333253 (Version 2)
Quarter: 2014Q3

REPORT INFORMATION
  Report Type: Spontaneous
  Country: US (occurrence: US)
  Receive Date: 20140722
  Receipt Date: 20140722
  Transmission Date: 20150326
  Serious: Yes (Life-Threatening, Hospitalization, Disabling, Other)
  Sender: FDA-Public Use
  Company Number: US-009507513-2011SP056189

PATIENT
  Sex: Female
  Weight: 109.77 kg

DRUGS (1)
  1. NUVARING [Suspect]
     Active Substance: ETHINYL ESTRADIOL\ETONOGESTREL
     Indication: CONTRACEPTION
     Dosage: UNK
     Route: 067
     Dates: start: 200909, end: 200912

REACTIONS (6)
  - Deep vein thrombosis [Unknown]
  - Bronchospasm [Unknown]
  - Bronchitis [Unknown]
  - Pneumonia [Unknown]
  - Pulmonary embolism [Recovering/Resolving]
  - Restlessness [Unknown]

NARRATIVE: CASE EVENT DATE: 200912
